FAERS Safety Report 23079890 (Version 1)
Quarter: 2023Q4

REPORT INFORMATION
  Report Type: Spontaneous
  Country: US (occurrence: US)
  Receive Date: 20231018
  Receipt Date: 20231018
  Transmission Date: 20240110
  Serious: Yes (Death, Other)
  Sender: FDA-Public Use
  Company Number: US-SANDOZ-SDZ2023US041577

PATIENT
  Age: 36 Year
  Sex: Female

DRUGS (1)
  1. METHOTREXATE [Suspect]
     Active Substance: METHOTREXATE
     Indication: Lymphoma AIDS related
     Dosage: UNK
     Route: 065

REACTIONS (3)
  - Brain death [Fatal]
  - Disease progression [Not Recovered/Not Resolved]
  - Product use in unapproved indication [Unknown]
